FAERS Safety Report 19228513 (Version 2)
Quarter: 2022Q2

REPORT INFORMATION
  Report Type: Report from Study
  Country: EG (occurrence: EG)
  Receive Date: 20210506
  Receipt Date: 20220602
  Transmission Date: 20220720
  Serious: Yes (Other)
  Sender: FDA-Public Use
  Company Number: EG-NOVARTISPH-NVSC2021EG095316

PATIENT
  Sex: Female

DRUGS (3)
  1. TASIGNA [Suspect]
     Active Substance: NILOTINIB
     Indication: Chronic myeloid leukaemia
     Dosage: 800 MG, QD ((4 CAPS/DAY TAKEN AS: 2 CAPS IN THE MORNING AND 2 CAPS AT NIGHT).
     Route: 065
     Dates: start: 2013, end: 202202
  2. SPRYCEL [Suspect]
     Active Substance: DASATINIB
     Indication: Chronic myeloid leukaemia
     Dosage: 100 MG, QD (2 TABS/DAY)
     Route: 048
     Dates: start: 202202, end: 202204
  3. SPRYCEL [Suspect]
     Active Substance: DASATINIB
     Dosage: 50 MG, QD (1 TAB/ DAY)
     Route: 048
     Dates: start: 202204

REACTIONS (9)
  - Cataract [Not Recovered/Not Resolved]
  - Duodenal ulcer [Unknown]
  - Eating disorder [Recovering/Resolving]
  - Abdominal pain [Recovering/Resolving]
  - Diarrhoea [Recovered/Resolved]
  - Nausea [Recovering/Resolving]
  - Vomiting [Recovering/Resolving]
  - Anisocoria [Not Recovered/Not Resolved]
  - Vision blurred [Not Recovered/Not Resolved]

NARRATIVE: CASE EVENT DATE: 20150101
